FAERS Safety Report 24295840 (Version 1)
Quarter: 2024Q3

REPORT INFORMATION
  Report Type: Spontaneous
  Country: US (occurrence: US)
  Receive Date: 20240908
  Receipt Date: 20240908
  Transmission Date: 20241017
  Serious: Yes (Death, Other)
  Sender: KVK-TECH
  Company Number: US-KVK-TECH, INC-20240800126

PATIENT

DRUGS (2)
  1. CHLORPHENIRAMINE MALEATE [Suspect]
     Active Substance: CHLORPHENIRAMINE MALEATE
     Indication: Product used for unknown indication
     Dosage: UNK, UNKNOWN
     Route: 065
  2. DIPHENHYDRAMINE [Suspect]
     Active Substance: DIPHENHYDRAMINE
     Indication: Product used for unknown indication
     Dosage: UNK, UNKNOWN
     Route: 065

REACTIONS (5)
  - Gastroenteritis [Fatal]
  - Dehydration [Fatal]
  - Diarrhoea [Fatal]
  - Intestinal haemorrhage [Fatal]
  - Hyponatraemia [Fatal]
